FAERS Safety Report 22056220 (Version 3)
Quarter: 2023Q1

REPORT INFORMATION
  Report Type: Spontaneous
  Country: US (occurrence: US)
  Receive Date: 20230302
  Receipt Date: 20230330
  Transmission Date: 20230418
  Serious: No
  Sender: FDA-Public Use
  Company Number: US-SA-SAC20230302000150

PATIENT
  Age: 51 Year
  Sex: Female

DRUGS (24)
  1. DUPIXENT [Suspect]
     Active Substance: DUPILUMAB
     Indication: Asthma
     Dosage: 600 MG, 1X
     Route: 065
     Dates: start: 20230217, end: 20230217
  2. DUPIXENT [Suspect]
     Active Substance: DUPILUMAB
     Dosage: 300 MG, QOW
     Route: 058
  3. ALBUTEROL SULFATE [Concomitant]
     Active Substance: ALBUTEROL SULFATE
  4. ALLEGRA ALLERGY [Concomitant]
     Active Substance: FEXOFENADINE HYDROCHLORIDE
     Dosage: 180MG
  5. AZELASTINE [Concomitant]
     Active Substance: AZELASTINE
  6. AZITHROMYCIN [Concomitant]
     Active Substance: AZITHROMYCIN
  7. BREO ELLIPTA [Concomitant]
     Active Substance: FLUTICASONE FUROATE\VILANTEROL TRIFENATATE
  8. CALCIUM [Concomitant]
     Active Substance: CALCIUM
     Dosage: 500MG
  9. CUTAQUIG [Concomitant]
     Active Substance: HUMAN IMMUNOGLOBULIN G
  10. DEXAMETHASONE [Concomitant]
     Active Substance: DEXAMETHASONE
  11. DILTIAZEM [Concomitant]
     Active Substance: DILTIAZEM
  12. ELIQUIS [Concomitant]
     Active Substance: APIXABAN
     Dosage: 5MG
  13. ESCITALOPRAM [Concomitant]
     Active Substance: ESCITALOPRAM OXALATE
  14. FLECAINIDE [Concomitant]
     Active Substance: FLECAINIDE
  15. HYDROXYZINE [Concomitant]
     Active Substance: HYDROXYZINE HYDROCHLORIDE
  16. IRON [Concomitant]
     Active Substance: IRON
     Dosage: 28MG
  17. LISINOPRIL [Concomitant]
     Active Substance: LISINOPRIL
  18. MELOXICAM [Concomitant]
     Active Substance: MELOXICAM
  19. MIRTAZAPINE [Concomitant]
     Active Substance: MIRTAZAPINE
  20. OMEPRAZOLE [Concomitant]
     Active Substance: OMEPRAZOLE
  21. POTASSIUM [Concomitant]
     Active Substance: POTASSIUM
     Dosage: 99MGS
  22. SERTRALINE [Concomitant]
     Active Substance: SERTRALINE HYDROCHLORIDE
  23. TRULICITY [Concomitant]
     Active Substance: DULAGLUTIDE
  24. VITAMIN B12 [Concomitant]
     Active Substance: CYANOCOBALAMIN
     Dosage: 100 UG

REACTIONS (3)
  - Illness [Unknown]
  - Blood glucose increased [Not Recovered/Not Resolved]
  - Dyspnoea [Not Recovered/Not Resolved]
